FAERS Safety Report 19745529 (Version 1)
Quarter: 2021Q3

REPORT INFORMATION
  Report Type: Other
  Country: JP (occurrence: JP)
  Receive Date: 20210825
  Receipt Date: 20210825
  Transmission Date: 20211014
  Serious: Yes (Other)
  Sender: FDA-Public Use
  Company Number: JP-ROCHE-2895425

PATIENT
  Age: 23 Year
  Sex: Male
  Weight: 74.1 kg

DRUGS (5)
  1. PIBRENTASVIR [Concomitant]
     Active Substance: PIBRENTASVIR
     Indication: ANTIVIRAL TREATMENT
  2. RIBAVIRIN. [Suspect]
     Active Substance: RIBAVIRIN
     Indication: HEPATITIS C
     Route: 065
  3. PREDNISOLONE. [Concomitant]
     Active Substance: PREDNISOLONE
     Indication: SARCOIDOSIS
  4. SOFOSBUVIR [Suspect]
     Active Substance: SOFOSBUVIR
     Indication: HEPATITIS C
     Route: 065
  5. PREDNISOLONE. [Concomitant]
     Active Substance: PREDNISOLONE

REACTIONS (4)
  - Intentional product misuse [Unknown]
  - Uveitis [Recovered/Resolved]
  - Skin reaction [Recovered/Resolved]
  - Transaminases increased [Recovered/Resolved]
